FAERS Safety Report 4937517-7 (Version None)
Quarter: 2006Q1

REPORT INFORMATION
  Report Type: 
  Country: None (occurrence: None)
  Receive Date: 20060306
  Receipt Date: 20060223
  Transmission Date: 20060701
  Serious: Yes (Hospitalization)
  Sender: FDA-Public Use
  Company Number: S05-USA-04347-01

PATIENT
  Age: 85 Year
  Sex: Male

DRUGS (10)
  1. LEXAPRO [Suspect]
     Indication: DEPRESSION
     Dosage: 2.5 MG QD PO
     Route: 048
     Dates: start: 20050801, end: 20050101
  2. LEXAPRO [Suspect]
     Indication: DEPRESSION
     Dosage: 2.5 MG QD PO
     Route: 048
     Dates: start: 20050101, end: 20050101
  3. TEGRETOL [Concomitant]
  4. LOPRESSOR [Concomitant]
  5. SYNTHROID (LELVOTHYROXINE SODIUM) [Concomitant]
  6. GLIPIZIDE [Concomitant]
  7. ACIPHEX [Concomitant]
  8. DOXYCYCLINE [Concomitant]
  9. COUMADIN [Concomitant]
  10. REGLAN [Concomitant]

REACTIONS (2)
  - CONVULSION [None]
  - MENTAL STATUS CHANGES [None]
